FAERS Safety Report 6104632-4 (Version None)
Quarter: 2009Q1

REPORT INFORMATION
  Report Type: 
  Country: None (occurrence: None)
  Receive Date: 20090303
  Receipt Date: 20090226
  Transmission Date: 20090719
  Serious: Yes (Hospitalization)
  Sender: FDA-Public Use
  Company Number: 116434

PATIENT
  Age: 84 Year
  Sex: Female
  Weight: 92.9874 kg

DRUGS (9)
  1. IBUPROFEN [Suspect]
     Indication: ARTHRITIS
     Dosage: 2 TABS/TID/ORAL
     Route: 048
     Dates: start: 20090101
  2. IBUPROFEN [Suspect]
     Indication: ATRIAL FIBRILLATION
     Dosage: 2 TABS/TID/ORAL
     Route: 048
     Dates: start: 20070901
  3. HUMULIN N [Concomitant]
  4. SYNTHROID [Concomitant]
  5. PRINIVIL [Concomitant]
  6. SANTURA [Concomitant]
  7. UNSPECIFIED BLOOD PRESSURE [Concomitant]
  8. CARDIZEM [Concomitant]
  9. LOPRESSOR [Concomitant]

REACTIONS (5)
  - BLOOD PRESSURE INCREASED [None]
  - OEDEMA PERIPHERAL [None]
  - PALPITATIONS [None]
  - TACHYCARDIA [None]
  - WEIGHT FLUCTUATION [None]
